FAERS Safety Report 15889327 (Version 1)
Quarter: 2019Q1

REPORT INFORMATION
  Report Type: Spontaneous
  Country: FI (occurrence: FI)
  Receive Date: 20190130
  Receipt Date: 20190130
  Transmission Date: 20190417
  Serious: Yes (Hospitalization, Other)
  Sender: FDA-Public Use
  Company Number: FI-SAKK-2019SA018050AA

PATIENT
  Age: 65 Year
  Sex: Male

DRUGS (1)
  1. LANTUS SOLOSTAR [Suspect]
     Active Substance: INSULIN GLARGINE
     Dosage: ACCORDING TO SPECIFIC INSTRUCTIONS
     Route: 065

REACTIONS (4)
  - Product storage error [Unknown]
  - Delirium [Unknown]
  - Alcohol abuse [Unknown]
  - Ketoacidosis [Unknown]
